FAERS Safety Report 4693338-4 (Version None)
Quarter: 2005Q2

REPORT INFORMATION
  Report Type: 
  Country: None (occurrence: None)
  Receive Date: 20050617
  Receipt Date: 20050311
  Transmission Date: 20051028
  Serious: Yes (Hospitalization, Other)
  Sender: FDA-Public Use
  Company Number: US-MERCK-0503USA02595

PATIENT
  Age: 41 Year
  Sex: Female
  Weight: 75 kg

DRUGS (11)
  1. VIOXX [Suspect]
     Indication: OSTEOARTHRITIS
     Route: 048
     Dates: start: 20000612, end: 20010101
  2. VIOXX [Suspect]
     Route: 048
     Dates: start: 20000612, end: 20010101
  3. VIOXX [Suspect]
     Route: 048
     Dates: start: 20000612, end: 20010101
  4. VIOXX [Suspect]
     Indication: FIBROMYALGIA
     Route: 048
     Dates: start: 20000612, end: 20010101
  5. VIOXX [Suspect]
     Route: 048
     Dates: start: 20000612, end: 20010101
  6. VIOXX [Suspect]
     Route: 048
     Dates: start: 20000612, end: 20010101
  7. CELEBREX [Concomitant]
     Route: 065
     Dates: start: 20010113, end: 20010724
  8. LIPITOR [Concomitant]
     Route: 065
     Dates: start: 20010208, end: 20011025
  9. AMITRIPTYLINE HYDROCHLORIDE [Concomitant]
     Route: 065
  10. SKELAXIN [Concomitant]
     Route: 065
  11. ATENOLOL [Concomitant]
     Route: 065

REACTIONS (23)
  - ABDOMINAL PAIN UPPER [None]
  - AFFECT LABILITY [None]
  - AGITATION [None]
  - AMNESIA [None]
  - ANEURYSM [None]
  - ANXIETY [None]
  - AORTIC VALVE INCOMPETENCE [None]
  - CEREBELLAR INFARCTION [None]
  - CHEST PAIN [None]
  - CONVULSION [None]
  - DEPRESSION [None]
  - DIARRHOEA [None]
  - EXPRESSIVE LANGUAGE DISORDER [None]
  - HALLUCINATION [None]
  - MITRAL VALVE INCOMPETENCE [None]
  - PULMONARY HYPERTENSION [None]
  - RESTLESS LEGS SYNDROME [None]
  - SINUS BRADYCARDIA [None]
  - SLEEP DISORDER [None]
  - TRANSIENT ISCHAEMIC ATTACK [None]
  - TRICUSPID VALVE INCOMPETENCE [None]
  - VERTEBRAL ARTERY OCCLUSION [None]
  - VERTIGO POSITIONAL [None]
